FAERS Safety Report 5002338-6 (Version None)
Quarter: 2006Q2

REPORT INFORMATION
  Report Type: 
  Country: None (occurrence: None)
  Receive Date: 20060510
  Receipt Date: 20060427
  Transmission Date: 20061013
  Serious: Yes (Other)
  Sender: FDA-Public Use
  Company Number: 2006056874

PATIENT
  Sex: Female
  Weight: 55.3388 kg

DRUGS (21)
  1. DETROL LA [Suspect]
     Indication: MUSCLE SPASMS
     Dosage: 4 MG (4 MG, 1 IN 1 D)
     Dates: end: 20060401
  2. DETROL LA [Suspect]
     Indication: POLLAKIURIA
     Dosage: 4 MG (4 MG, 1 IN 1 D)
     Dates: end: 20060401
  3. DETROL LA [Suspect]
     Indication: URINARY INCONTINENCE
     Dosage: 4 MG (4 MG, 1 IN 1 D)
     Dates: end: 20060401
  4. PREDNISONE TAB [Suspect]
     Indication: SYSTEMIC LUPUS ERYTHEMATOSUS
  5. IBUPROFEN [Suspect]
     Indication: HEADACHE
  6. IBUPROFEN [Suspect]
     Indication: PAIN
  7. IBUPROFEN [Suspect]
     Indication: SYSTEMIC LUPUS ERYTHEMATOSUS
  8. SYNTHROID [Concomitant]
     Indication: THYROID DISORDER
  9. PREMARIN [Suspect]
     Indication: HORMONE REPLACEMENT THERAPY
  10. MELATONIN (MELATONIN) [Suspect]
     Indication: SLEEP DISORDER
  11. ALLEGRA [Concomitant]
  12. DEPOKATE - SLOW RELEASE (VALPROATE SEMISODIUM) [Concomitant]
  13. NEXIUM [Concomitant]
  14. FOSAMAX [Concomitant]
  15. ACETAMINOPHEN [Concomitant]
  16. PROVIGIL [Concomitant]
  17. ADVAIR DISKUS 100/50 [Concomitant]
  18. SINGULAIR [Concomitant]
  19. MAXALT (RIZARTRIPTAN BENZOATE) [Concomitant]
  20. PROVENTIL (NHALER (SALBUTAMOL) [Concomitant]
  21. PLAQUENIL [Concomitant]

REACTIONS (13)
  - CEREBRAL DISORDER [None]
  - CYSTITIS [None]
  - DIZZINESS [None]
  - DRUG INTERACTION [None]
  - FALL [None]
  - INCORRECT DOSE ADMINISTERED [None]
  - JOINT INJURY [None]
  - MULTIPLE SCLEROSIS [None]
  - MUSCLE SPASMS [None]
  - NEURITIS [None]
  - NEUROPATHY PERIPHERAL [None]
  - PAIN [None]
  - VOMITING [None]
